FAERS Safety Report 8373369-3 (Version None)
Quarter: 2012Q2

REPORT INFORMATION
  Report Type: 
  Country: None (occurrence: None)
  Receive Date: 20120521
  Receipt Date: 20120507
  Transmission Date: 20120825
  Serious: Yes (Hospitalization, Other)
  Sender: FDA-Public Use
  Company Number: US-ELI_LILLY_AND_COMPANY-US201204003840

PATIENT
  Sex: Female

DRUGS (4)
  1. NEXIUM [Concomitant]
     Dosage: UNK UNK, QD
  2. PHILLIPS COLON HEALTH [Concomitant]
     Dosage: UNK UNK, QD
  3. ASPIRIN [Concomitant]
     Dosage: UNK, QD
  4. FORTEO [Suspect]
     Indication: OSTEOPOROSIS
     Dosage: 20 UG, QD
     Dates: start: 20120406, end: 20120420

REACTIONS (3)
  - HAEMATOMA [None]
  - FALL [None]
  - HEADACHE [None]
